FAERS Safety Report 10577154 (Version 3)
Quarter: 2015Q1

REPORT INFORMATION
  Report Type: Spontaneous
  Country: US (occurrence: US)
  Receive Date: 20141111
  Receipt Date: 20150209
  Transmission Date: 20150720
  Serious: Yes (Death, Hospitalization, Other)
  Sender: FDA-Public Use
  Company Number: US-PFIZER INC-2014307264

PATIENT
  Age: 82 Year
  Sex: Female

DRUGS (8)
  1. CLOPIDOGREL [Concomitant]
     Active Substance: CLOPIDOGREL BISULFATE
     Dosage: 75 MG, UNK
     Dates: start: 2008
  2. REVATIO [Suspect]
     Active Substance: SILDENAFIL CITRATE
     Indication: HYPERTENSION
     Dosage: UNK (DOUBLED THE DOSE)
  3. ASPIRIN. [Concomitant]
     Active Substance: ASPIRIN
     Dosage: 81 MG, UNK
     Dates: start: 2008
  4. REVATIO [Suspect]
     Active Substance: SILDENAFIL CITRATE
     Indication: DYSPNOEA
     Dosage: 2 DF, 3X/DAY
  5. ATORVASTATIN [Concomitant]
     Active Substance: ATORVASTATIN
     Dosage: 80 MG, UNK
     Dates: start: 2008
  6. REVATIO [Suspect]
     Active Substance: SILDENAFIL CITRATE
     Dosage: 40 MG, 3X/DAY
     Dates: start: 2012
  7. CARVEDILOL. [Concomitant]
     Active Substance: CARVEDILOL
     Dosage: UNK (25X2)
     Dates: start: 2008
  8. FUROSEMIDE. [Concomitant]
     Active Substance: FUROSEMIDE
     Dosage: 40 MG, UNK
     Dates: start: 2008

REACTIONS (4)
  - Hypoxia [Not Recovered/Not Resolved]
  - Back pain [Recovered/Resolved]
  - Death [Fatal]
  - Anaesthetic complication [Not Recovered/Not Resolved]

NARRATIVE: CASE EVENT DATE: 2014
